FAERS Safety Report 14004915 (Version 2)
Quarter: 2017Q3

REPORT INFORMATION
  Report Type: Spontaneous
  Country: BR (occurrence: BR)
  Receive Date: 20170922
  Receipt Date: 20170929
  Transmission Date: 20171128
  Serious: Yes (Other)
  Sender: FDA-Public Use
  Company Number: BR-PFIZER INC-2017406463

PATIENT
  Age: 74 Year
  Sex: Female

DRUGS (1)
  1. VIDMAX [Suspect]
     Active Substance: TOPIRAMATE

REACTIONS (9)
  - Crying [Unknown]
  - Anosmia [Unknown]
  - Eating disorder [Unknown]
  - Peripheral swelling [Unknown]
  - Ageusia [Unknown]
  - Paralysis [Unknown]
  - Feeling abnormal [Not Recovered/Not Resolved]
  - Hypoaesthesia [Unknown]
  - Bedridden [Recovered/Resolved]
